FAERS Safety Report 13543049 (Version 1)
Quarter: 2017Q2

REPORT INFORMATION
  Report Type: Spontaneous
  Country: US (occurrence: US)
  Receive Date: 20170512
  Receipt Date: 20170512
  Transmission Date: 20170830
  Serious: Yes (Hospitalization)
  Sender: FDA-Public Use
  Company Number: None

PATIENT
  Age: 18 Year
  Sex: Female

DRUGS (6)
  1. MONTELUKAST [Concomitant]
     Active Substance: MONTELUKAST SODIUM
  2. PULMOZYME [Suspect]
     Active Substance: DORNASE ALFA
     Indication: CYSTIC FIBROSIS
     Dosage: ROUTE - NEBULIZER
     Dates: start: 20130221
  3. FLUTICASONE. [Concomitant]
     Active Substance: FLUTICASONE
  4. TOBRAMYCIN 40MG/ML MDV [Suspect]
     Active Substance: TOBRAMYCIN SULFATE
     Indication: CYSTIC FIBROSIS
     Dosage: ROUTE - NEBULIZER?FREQUENCY - TID 14 DAYS ON 14 DAYS OFF
     Dates: start: 20170123
  5. CYPROHEPTADINE. [Concomitant]
     Active Substance: CYPROHEPTADINE
  6. CAYSTON [Suspect]
     Active Substance: AZTREONAM
     Indication: CYSTIC FIBROSIS
     Dosage: ROUTE - NEBULIZER
     Dates: start: 20150224

REACTIONS (3)
  - Condition aggravated [None]
  - Cystic fibrosis [None]
  - Viral infection [None]

NARRATIVE: CASE EVENT DATE: 20170508
